FAERS Safety Report 8338101-8 (Version None)
Quarter: 2012Q2

REPORT INFORMATION
  Report Type: 
  Country: None (occurrence: None)
  Receive Date: 20120504
  Receipt Date: 20120430
  Transmission Date: 20120825
  Serious: Yes (Other)
  Sender: FDA-Public Use
  Company Number: PHEH2012US006448

PATIENT
  Sex: Male

DRUGS (5)
  1. GILENYA [Suspect]
     Indication: MULTIPLE SCLEROSIS
     Dosage: 0.5 MG,QD
     Route: 048
     Dates: start: 20101215, end: 20120306
  2. SINGULAIR [Concomitant]
     Indication: HYPERSENSITIVITY
     Dosage: 10 MG, QD
     Dates: start: 20100907, end: 20111215
  3. HYDROCHLOROTHIAZIDE [Concomitant]
     Indication: POLYURIA
     Dosage: 25 MG, QD
  4. PRILOSEC [Concomitant]
     Indication: GASTROOESOPHAGEAL REFLUX DISEASE
     Dosage: 40 MG, QD
     Dates: start: 20101209, end: 20110819
  5. VERAPAMIL [Concomitant]
     Indication: HYPERTENSION
     Dosage: 40 UKN, QD
     Dates: start: 20100907, end: 20120119

REACTIONS (9)
  - CENTRAL NERVOUS SYSTEM LESION [None]
  - TREMOR [None]
  - DRUG INEFFECTIVE [None]
  - BALANCE DISORDER [None]
  - ATAXIA [None]
  - FATIGUE [None]
  - MEMORY IMPAIRMENT [None]
  - DISTURBANCE IN ATTENTION [None]
  - GAIT DISTURBANCE [None]
